FAERS Safety Report 11828485 (Version 1)
Quarter: 2015Q4

REPORT INFORMATION
  Report Type: Spontaneous
  Country: US (occurrence: US)
  Receive Date: 20151211
  Receipt Date: 20151211
  Transmission Date: 20160305
  Serious: No
  Sender: FDA-Public Use
  Company Number: US-BAUSCH-BL-2015-004006

PATIENT
  Sex: Male

DRUGS (4)
  1. XENAZINE [Suspect]
     Active Substance: TETRABENAZINE
     Dosage: IN THE NOON
     Route: 048
  2. XENAZINE [Suspect]
     Active Substance: TETRABENAZINE
     Dosage: AT 5 PM
     Route: 048
  3. XENAZINE [Suspect]
     Active Substance: TETRABENAZINE
     Indication: CHOREA
     Route: 048
     Dates: start: 20150114
  4. XENAZINE [Suspect]
     Active Substance: TETRABENAZINE
     Dosage: IN THE MORNING
     Route: 048

REACTIONS (1)
  - Drug ineffective [Unknown]
